FAERS Safety Report 6469943-1 (Version None)
Quarter: 2009Q4

REPORT INFORMATION
  Report Type: 
  Country: None (occurrence: None)
  Receive Date: 20091203
  Receipt Date: 20091125
  Transmission Date: 20100525
  Serious: Yes (Other)
  Sender: FDA-Public Use
  Company Number: DE-ROCHE-672109

PATIENT
  Age: 14 Year
  Sex: Female

DRUGS (1)
  1. TAMIFLU [Suspect]
     Indication: PYREXIA
     Route: 065
     Dates: start: 20091111, end: 20091114

REACTIONS (4)
  - ANXIETY [None]
  - DELUSION [None]
  - HEADACHE [None]
  - PARAESTHESIA [None]
